FAERS Safety Report 10770927 (Version 1)
Quarter: 2015Q1

REPORT INFORMATION
  Report Type: Spontaneous
  Country: US (occurrence: None)
  Receive Date: 20150206
  Receipt Date: 20150206
  Transmission Date: 20150721
  Serious: No
  Sender: FDA-Public Use
  Company Number: HYP201308-000044

PATIENT
  Age: 34 Year
  Sex: Female
  Weight: 70.7 kg

DRUGS (18)
  1. CALCIUM WITH VITAMIN D [Concomitant]
     Active Substance: CALCIUM\VITAMIN D
  2. CLARITIN [Concomitant]
     Active Substance: LORATADINE
  3. OXCARBAZEPINE. [Concomitant]
     Active Substance: OXCARBAZEPINE
  4. POTASSIUM CHLORIDE. [Concomitant]
     Active Substance: POTASSIUM CHLORIDE
  5. MAGNESIUM OXIDE. [Concomitant]
     Active Substance: MAGNESIUM OXIDE
  6. RAVICTI [Suspect]
     Active Substance: GLYCEROL PHENYLBUTYRATE
     Indication: UREA CYCLE ENZYME DEFICIENCY
     Route: 048
     Dates: start: 20130728, end: 20130806
  7. EAA SUPPLEMENTS [Concomitant]
  8. LEUCINE??? [Concomitant]
  9. L-ARGININE [Concomitant]
     Active Substance: ARGININE
  10. VALINE [Concomitant]
     Active Substance: VALINE
  11. LEXAPRO [Concomitant]
     Active Substance: ESCITALOPRAM OXALATE
  12. CHOLESTYRAMINE. [Concomitant]
     Active Substance: CHOLESTYRAMINE
  13. PREVIFEM [Concomitant]
     Active Substance: ETHINYL ESTRADIOL\NORGESTIMATE
  14. ISOLEUCINE [Concomitant]
     Active Substance: ISOLEUCINE
  15. WOMEN^S MULTIPLE VITAMIN [Concomitant]
  16. SODIUM CHLORIDE. [Concomitant]
     Active Substance: SODIUM CHLORIDE
  17. RANITIDINE [Concomitant]
     Active Substance: RANITIDINE\RANITIDINE HYDROCHLORIDE
  18. PRO-PHREE [Concomitant]

REACTIONS (4)
  - Vomiting [None]
  - Ammonia increased [None]
  - Nausea [None]
  - Somnolence [None]

NARRATIVE: CASE EVENT DATE: 20130801
